FAERS Safety Report 8861507 (Version 4)
Quarter: 2013Q1

REPORT INFORMATION
  Report Type: Spontaneous
  Country: US (occurrence: None)
  Receive Date: 20121023
  Receipt Date: 20130116
  Transmission Date: 20140127
  Serious: Yes (Other)
  Sender: FDA-Public Use
  Company Number: ADR-2012-01916

PATIENT
  Age: 51 Year
  Sex: Female

DRUGS (2)
  1. LIORESAL [Suspect]
     Indication: MUSCLE SPASTICITY
  2. ZANAFLEX [Concomitant]

REACTIONS (14)
  - Muscle rigidity [None]
  - Musculoskeletal stiffness [None]
  - Hypotonia [None]
  - Pruritus [None]
  - Drug ineffective [None]
  - Crying [None]
  - Mental status changes [None]
  - Aphonia [None]
  - Fall [None]
  - Nausea [None]
  - Dyspnoea [None]
  - Asthenia [None]
  - Hypoaesthesia [None]
  - Movement disorder [None]
